FAERS Safety Report 21553421 (Version 1)
Quarter: 2022Q4

REPORT INFORMATION
  Report Type: Spontaneous
  Country: BR (occurrence: BR)
  Receive Date: 20221104
  Receipt Date: 20221104
  Transmission Date: 20230113
  Serious: Yes (Hospitalization, Other)
  Sender: FDA-Public Use
  Company Number: BR-GLAXOSMITHKLINE-BR2015GSK142043

PATIENT

DRUGS (10)
  1. BENLYSTA [Suspect]
     Active Substance: BELIMUMAB
     Indication: Systemic lupus erythematosus
     Dosage: 120 MG, UNK, 5 AMPOULES OF 120MG
     Dates: start: 20150929
  2. BENLYSTA [Suspect]
     Active Substance: BELIMUMAB
     Dosage: UNK
     Dates: start: 20190712
  3. BENLYSTA [Suspect]
     Active Substance: BELIMUMAB
     Dosage: UNK
     Dates: start: 20190809, end: 202210
  4. AMOXICILLIN\CLAVULANIC ACID [Suspect]
     Active Substance: AMOXICILLIN\CLAVULANIC ACID
     Indication: Sinusitis
     Dosage: UNK
  5. PREDNISONE [Suspect]
     Active Substance: PREDNISONE
     Indication: Product used for unknown indication
     Dosage: 20 MG, QD
  6. PREDNISONE [Suspect]
     Active Substance: PREDNISONE
     Dosage: 5 MG
  7. DIPHENHYDRAMINE HYDROCHLORIDE [Concomitant]
     Active Substance: DIPHENHYDRAMINE HYDROCHLORIDE
     Indication: Product used for unknown indication
     Dosage: UNK , 50 MG
  8. ACETAMINOPHEN [Concomitant]
     Active Substance: ACETAMINOPHEN
     Indication: Product used for unknown indication
     Dosage: UNK
  9. PANTOPRAZOLE [Concomitant]
     Active Substance: PANTOPRAZOLE
     Indication: Product used for unknown indication
     Dosage: 40 MG, UNK
  10. SOLU CORTEF (HYDROCORTISONE) [Concomitant]
     Indication: Product used for unknown indication
     Dosage: UNK , 100 MG

REACTIONS (67)
  - Pneumonia [Recovered/Resolved]
  - Asthenia [Not Recovered/Not Resolved]
  - Muscular weakness [Unknown]
  - Nausea [Recovered/Resolved]
  - Diarrhoea [Recovered/Resolved]
  - Abdominal pain [Recovered/Resolved]
  - Vomiting [Recovered/Resolved]
  - Abdominal pain upper [Recovered/Resolved]
  - Platelet count decreased [Recovered/Resolved]
  - Face injury [Recovered/Resolved]
  - Gastrooesophageal reflux disease [Recovered/Resolved]
  - Malaise [Recovered/Resolved]
  - Sinusitis [Recovered/Resolved]
  - Urinary tract infection [Recovered/Resolved]
  - Back pain [Recovered/Resolved]
  - Weight increased [Recovered/Resolved]
  - Pain [Recovered/Resolved]
  - Skin discolouration [Recovered/Resolved]
  - Epistaxis [Recovered/Resolved]
  - Nervousness [Recovered/Resolved]
  - Emotional distress [Recovered/Resolved]
  - Amenorrhoea [Recovered/Resolved]
  - Hair growth abnormal [Recovered/Resolved]
  - Hyperhidrosis [Recovered/Resolved]
  - Feeling hot [Recovered/Resolved]
  - Menstruation delayed [Recovered/Resolved]
  - Arthralgia [Recovered/Resolved]
  - Ear pain [Recovered/Resolved]
  - Oropharyngeal pain [Recovered/Resolved]
  - Catarrh [Recovered/Resolved]
  - Erythema [Recovered/Resolved]
  - Pain in extremity [Recovered/Resolved]
  - Stress [Recovered/Resolved]
  - Crying [Unknown]
  - Alopecia [Recovered/Resolved]
  - Swelling [Recovered/Resolved]
  - Abdominal distension [Recovered/Resolved]
  - Fluid retention [Recovered/Resolved]
  - Skin disorder [Unknown]
  - Wound haemorrhage [Unknown]
  - Gastritis [Unknown]
  - Oesophagitis [Unknown]
  - Anxiety [Unknown]
  - Therapy interrupted [Unknown]
  - Musculoskeletal stiffness [Unknown]
  - Disease recurrence [Unknown]
  - Gingival bleeding [Unknown]
  - Burning sensation [Unknown]
  - Skin lesion [Unknown]
  - Condition aggravated [Unknown]
  - Movement disorder [Unknown]
  - Influenza [Recovering/Resolving]
  - Cough [Not Recovered/Not Resolved]
  - Dyspnoea [Recovered/Resolved]
  - Productive cough [Recovered/Resolved]
  - Aphonia [Not Recovered/Not Resolved]
  - Arthralgia [Recovered/Resolved]
  - Pyrexia [Recovered/Resolved]
  - Retching [Recovered/Resolved]
  - Decreased appetite [Recovered/Resolved]
  - Condition aggravated [Unknown]
  - Therapeutic response unexpected [Recovered/Resolved]
  - Off label use [Recovered/Resolved]
  - Product availability issue [Unknown]
  - Product dose omission issue [Recovered/Resolved]
  - Circumstance or information capable of leading to medication error [Unknown]
  - Inappropriate schedule of product administration [Recovered/Resolved]

NARRATIVE: CASE EVENT DATE: 20200725
